FAERS Safety Report 4540782-1 (Version None)
Quarter: 2004Q4

REPORT INFORMATION
  Report Type: 
  Country: None (occurrence: None)
  Receive Date: 20041222
  Receipt Date: 20041209
  Transmission Date: 20050328
  Serious: Yes (Death, Other)
  Sender: FDA-Public Use
  Company Number: EWC041241782

PATIENT
  Age: 49 Year
  Sex: Male
  Weight: 62 kg

DRUGS (5)
  1. GEMCITABINE HYDROCHLORIDE-IV (GEMCITABINE) [Suspect]
     Indication: LUNG NEOPLASM MALIGNANT
     Dosage: 1700 MG
     Dates: start: 20040907, end: 20040907
  2. NAVELBINE [Concomitant]
  3. ZOFRAN [Concomitant]
  4. DEXAMETHASONE [Concomitant]
  5. MACPERAN (METOCLOPRAMIDE) [Concomitant]

REACTIONS (4)
  - LEUKOPENIA [None]
  - MENTAL STATUS CHANGES [None]
  - PLEURAL EFFUSION [None]
  - SOMNOLENCE [None]
